FAERS Safety Report 11381322 (Version 1)
Quarter: 2015Q3

REPORT INFORMATION
  Report Type: Spontaneous
  Country: IT (occurrence: IT)
  Receive Date: 20150814
  Receipt Date: 20150814
  Transmission Date: 20151125
  Serious: Yes (Hospitalization)
  Sender: FDA-Public Use
  Company Number: IT-TEVA-584519ACC

PATIENT
  Age: 73 Year
  Sex: Male

DRUGS (7)
  1. THIAMAZOLE [Concomitant]
     Active Substance: METHIMAZOLE
     Indication: PRODUCT USED FOR UNKNOWN INDICATION
     Route: 048
  2. VIEKIRAX - 12.5MG/75MG/50MG COMPRESSA RIVESTITA CON FILM [Suspect]
     Active Substance: OMBITASVIR\PARITAPREVIR\RITONAVIR
     Indication: HEPATITIS C
     Dosage: 25 MILLIGRAM DAILY; 25 MG DAILY
     Route: 048
     Dates: start: 20150709, end: 20150722
  3. EXVIERA - 250 MG COMPRESSA RIVESTITA CON FILM - ABBVIE LTD [Suspect]
     Active Substance: DASABUVIR
     Indication: HEPATITIS C
     Dosage: 500 MILLIGRAM DAILY; 500 MG DAILY
     Route: 048
     Dates: start: 20150709, end: 20150722
  4. VENLAFAXINE [Concomitant]
     Active Substance: VENLAFAXINE HYDROCHLORIDE
     Indication: PRODUCT USED FOR UNKNOWN INDICATION
     Route: 048
  5. FELODIPINE. [Concomitant]
     Active Substance: FELODIPINE
     Indication: PRODUCT USED FOR UNKNOWN INDICATION
     Route: 048
  6. RIBAVIRIN. [Suspect]
     Active Substance: RIBAVIRIN
     Indication: HEPATITIS C
     Dosage: 1200 MILLIGRAM DAILY; 1200 MG DAILY
     Route: 048
     Dates: start: 20150709, end: 20150720
  7. SILODOSIN [Concomitant]
     Active Substance: SILODOSIN
     Indication: PRODUCT USED FOR UNKNOWN INDICATION
     Route: 048

REACTIONS (2)
  - Confusional state [Recovered/Resolved]
  - Hepatic encephalopathy [Recovered/Resolved]

NARRATIVE: CASE EVENT DATE: 20150720
